FAERS Safety Report 7503165-8 (Version None)
Quarter: 2011Q2

REPORT INFORMATION
  Report Type: 
  Country: None (occurrence: None)
  Receive Date: 20110525
  Receipt Date: 20101101
  Transmission Date: 20111010
  Serious: No
  Sender: FDA-Public Use
  Company Number: US-NOVEN-ALL1-2010-05712

PATIENT
  Age: 11 Year
  Sex: Male
  Weight: 42.177 kg

DRUGS (5)
  1. SEROQUEL [Concomitant]
     Dosage: 50 MG, 1X/DAY:QD
     Route: 048
     Dates: start: 20090101
  2. PEXEVA [Concomitant]
     Dosage: 20 MG, 1X/DAY:QD
     Route: 048
     Dates: start: 20080101
  3. DAYTRANA [Suspect]
     Dosage: 15 MG, 1X/DAY:QD
     Route: 062
     Dates: start: 20101029
  4. SEROQUEL [Concomitant]
     Dosage: 150 MG, 1X/DAY:QD (AT NIGHT)
     Route: 048
     Dates: start: 20090101
  5. INTUNIV [Concomitant]
     Dosage: 4 MG, 1X/DAY:QD
     Route: 048
     Dates: start: 20090101

REACTIONS (3)
  - APPLICATION SITE ERYTHEMA [None]
  - APPLICATION SITE INFLAMMATION [None]
  - APPLICATION SITE PRURITUS [None]
